FAERS Safety Report 22937619 (Version 8)
Quarter: 2024Q3

REPORT INFORMATION
  Report Type: Spontaneous
  Country: IT (occurrence: IT)
  Receive Date: 20230913
  Receipt Date: 20240905
  Transmission Date: 20241017
  Serious: Yes (Other)
  Sender: CELLTRION
  Company Number: IT-CELLTRION INC.-2023IT017653

PATIENT

DRUGS (3)
  1. RITUXIMAB [Suspect]
     Active Substance: RITUXIMAB
     Indication: Immunoglobulin G4 related disease
     Dosage: UNK
     Route: 042
  2. RITUXIMAB [Suspect]
     Active Substance: RITUXIMAB
     Indication: Sjogren^s syndrome
     Dosage: UNK, SECOND RITUXIMAB INFUSION (ADDITIONAL INFORMATION ON DRUG (CODED): OFF LABEL USE)
  3. RITUXIMAB [Suspect]
     Active Substance: RITUXIMAB
     Indication: Immunoglobulin G4 related disease
     Dosage: UNK (ADDITIONAL INFORMATION ON DRUG (CODED): OFF LABEL USE)
     Route: 065

REACTIONS (2)
  - Macular oedema [Recovered/Resolved]
  - Off label use [Unknown]
